FAERS Safety Report 9712784 (Version 1)
Quarter: 2013Q4

REPORT INFORMATION
  Report Type: Spontaneous
  Country: US (occurrence: None)
  Receive Date: 20131125
  Receipt Date: 20131125
  Transmission Date: 20140711
  Serious: Yes (Death)
  Sender: FDA-Public Use
  Company Number: None

PATIENT
  Age: 74 Year
  Sex: Female
  Weight: 89.5 kg

DRUGS (7)
  1. EXJADE [Suspect]
     Indication: NEOPLASM
     Dosage: 2500MG DAILY ORAL
     Route: 048
     Dates: start: 20120703, end: 20131022
  2. DANAZOL [Concomitant]
  3. SPIRIVA [Concomitant]
  4. ASPIRIN [Concomitant]
  5. METOPROLOL [Concomitant]
  6. TRICOR [Concomitant]
  7. LASIX [Concomitant]

REACTIONS (1)
  - Death [None]
